FAERS Safety Report 16196681 (Version 1)
Quarter: 2019Q2

REPORT INFORMATION
  Report Type: Spontaneous
  Country: US (occurrence: US)
  Receive Date: 20190412
  Receipt Date: 20190412
  Transmission Date: 20190711
  Serious: Yes (Other)
  Sender: FDA-Public Use
  Company Number: None

PATIENT
  Age: 46 Year
  Sex: Female
  Weight: 76.5 kg

DRUGS (1)
  1. JARDIANCE [Suspect]
     Active Substance: EMPAGLIFLOZIN
     Indication: DIABETES MELLITUS
     Route: 048
     Dates: start: 20190326, end: 20190331

REACTIONS (5)
  - Skin burning sensation [None]
  - Asthma [None]
  - Urticaria [None]
  - Eye inflammation [None]
  - Eye pruritus [None]

NARRATIVE: CASE EVENT DATE: 20190331
